FAERS Safety Report 9150139 (Version 1)
Quarter: 2013Q1

REPORT INFORMATION
  Report Type: Spontaneous
  Country: SE (occurrence: SE)
  Receive Date: 20130308
  Receipt Date: 20130308
  Transmission Date: 20140127
  Serious: Yes (Other)
  Sender: FDA-Public Use
  Company Number: SE-JNJFOC-20130303571

PATIENT
  Age: 86 Year
  Sex: Female

DRUGS (3)
  1. CETIRIZINE [Suspect]
     Route: 065
  2. CETIRIZINE [Suspect]
     Indication: HYPERSENSITIVITY
     Route: 065
     Dates: start: 201210, end: 2012
  3. ARTROX [Suspect]
     Indication: OSTEOPOROSIS
     Route: 065

REACTIONS (4)
  - Fluid retention [Unknown]
  - Drug administered to patient of inappropriate age [Unknown]
  - Pruritus generalised [Recovered/Resolved]
  - Rash pruritic [Not Recovered/Not Resolved]
